FAERS Safety Report 21735962 (Version 4)
Quarter: 2023Q2

REPORT INFORMATION
  Report Type: Spontaneous
  Country: US (occurrence: US)
  Receive Date: 20221215
  Receipt Date: 20230406
  Transmission Date: 20230722
  Serious: Yes (Other)
  Sender: FDA-Public Use
  Company Number: US-PFIZER INC-PV202200120246

PATIENT
  Age: 83 Year
  Sex: Female
  Weight: 53.515 kg

DRUGS (4)
  1. PREMARIN [Suspect]
     Active Substance: ESTROGENS, CONJUGATED
     Indication: Lichen sclerosus
     Dosage: 3 TIMES A WEEK
  2. PREMARIN [Suspect]
     Active Substance: ESTROGENS, CONJUGATED
     Indication: Vulvitis
     Dosage: ONCE A WEEK OR ONCE EVERY OTHER WEEK
  3. PREMARIN [Suspect]
     Active Substance: ESTROGENS, CONJUGATED
     Indication: Pain
     Dosage: 1 G, 2X/WEEK (INSERT 1 GRAM VAGINALLY TWICE A WEEK)
     Route: 067
  4. PREMARIN [Suspect]
     Active Substance: ESTROGENS, CONJUGATED
     Dosage: UNK (SUPPOSE TO USE IT 3 TIMES A WEEK LAST WEEK)

REACTIONS (6)
  - Macular degeneration [Unknown]
  - Intentional product misuse [Unknown]
  - Off label use [Unknown]
  - Expired product administered [Unknown]
  - COVID-19 [Unknown]
  - Malaise [Unknown]

NARRATIVE: CASE EVENT DATE: 20220201
